FAERS Safety Report 6915136-0 (Version None)
Quarter: 2010Q3

REPORT INFORMATION
  Report Type: 
  Country: None (occurrence: None)
  Receive Date: 20100809
  Receipt Date: 20100804
  Transmission Date: 20110219
  Serious: Yes (Other)
  Sender: FDA-Public Use
  Company Number: ES-WYE-G06503710

PATIENT
  Age: 67 Year
  Sex: Female

DRUGS (4)
  1. TAZOCEL [Suspect]
     Indication: DEVICE RELATED INFECTION
     Route: 042
     Dates: start: 20100407, end: 20100428
  2. TRAMADOL HCL [Concomitant]
     Indication: PAIN
     Route: 042
     Dates: start: 20100413, end: 20100419
  3. VANCOMYCIN [Suspect]
     Route: 042
     Dates: start: 20100407, end: 20100502
  4. VENLAFAXINE HYDROCHLORIDE [Concomitant]
     Indication: DEPRESSION
     Route: 048
     Dates: start: 20100412

REACTIONS (6)
  - DRUG RASH WITH EOSINOPHILIA AND SYSTEMIC SYMPTOMS [None]
  - EOSINOPHILIA [None]
  - NEUTROPENIA [None]
  - PYREXIA [None]
  - RASH [None]
  - TUBULOINTERSTITIAL NEPHRITIS [None]
